FAERS Safety Report 7883480-9 (Version None)
Quarter: 2011Q4

REPORT INFORMATION
  Report Type: 
  Country: None (occurrence: None)
  Receive Date: 20111102
  Receipt Date: 20110127
  Transmission Date: 20120403
  Serious: No
  Sender: FDA-Public Use
  Company Number: US-GLAXOSMITHKLINE-A0802297A

PATIENT
  Age: 63 Year
  Sex: Female

DRUGS (7)
  1. RYTHMOL SR [Suspect]
     Indication: ATRIAL FIBRILLATION
     Dosage: 225MG THREE TIMES PER DAY
     Route: 048
     Dates: start: 20090718
  2. PEPCID COMPLETE [Concomitant]
  3. TOPROL-XL [Concomitant]
  4. WARFARIN [Concomitant]
  5. PROPAFENONE HYDROCHLORIDE [Suspect]
     Indication: ATRIAL FIBRILLATION
     Dosage: 150MG TWICE PER DAY
     Route: 048
     Dates: start: 20081101, end: 20090101
  6. NORVASC [Concomitant]
  7. MULTIPLE MEDICATIONS [Concomitant]

REACTIONS (5)
  - FATIGUE [None]
  - OVERDOSE [None]
  - TREMOR [None]
  - DRUG INEFFECTIVE [None]
  - MUSCULAR WEAKNESS [None]
